FAERS Safety Report 8893617 (Version 3)
Quarter: 2012Q4

REPORT INFORMATION
  Report Type: 
  Country: JP (occurrence: JP)
  Receive Date: 20121108
  Receipt Date: 20121123
  Transmission Date: 20130627
  Serious: Yes (Hospitalization, Other)
  Sender: FDA-Public Use
  Company Number: JP-JNJFOC-20121101283

PATIENT
  Age: 25 Year
  Sex: Female

DRUGS (2)
  1. RISPERDAL [Suspect]
     Indication: SLEEP DISORDER
     Route: 048
  2. ABILIFY [Concomitant]
     Route: 048

REACTIONS (3)
  - Loss of consciousness [Recovered/Resolved]
  - Drug diversion [Unknown]
  - Overdose [Unknown]
